FAERS Safety Report 7327089-4 (Version None)
Quarter: 2011Q1

REPORT INFORMATION
  Report Type: 
  Country: None (occurrence: None)
  Receive Date: 20110302
  Receipt Date: 20110302
  Transmission Date: 20110831
  Serious: Yes (Other)
  Sender: FDA-Public Use
  Company Number: IT-ELI_LILLY_AND_COMPANY-IT201010004980

PATIENT
  Sex: Female

DRUGS (4)
  1. SEROTONIN ANTAGONISTS [Concomitant]
  2. EPIRUBICIN [Concomitant]
     Indication: OVARIAN CANCER
     Dosage: 60 MG/M2, UNK
     Route: 042
  3. GEMCITABINE HYDROCHLORIDE [Suspect]
     Indication: OVARIAN CANCER
     Dosage: 1000 MG/M2, UNK
     Route: 042
  4. DEXAMETHASONE [Concomitant]

REACTIONS (1)
  - HEPATIC FUNCTION ABNORMAL [None]
